FAERS Safety Report 24441739 (Version 4)
Quarter: 2025Q1

REPORT INFORMATION
  Report Type: Report from Study
  Country: CA (occurrence: CA)
  Receive Date: 20241016
  Receipt Date: 20250101
  Transmission Date: 20250409
  Serious: Yes (Hospitalization)
  Sender: ALEXION PHARMACEUTICALS
  Company Number: CA-AstraZeneca-CH-00718259A

PATIENT

DRUGS (20)
  1. TEZEPELUMAB [Suspect]
     Active Substance: TEZEPELUMAB
     Indication: Asthma
  2. TEZEPELUMAB [Suspect]
     Active Substance: TEZEPELUMAB
     Route: 058
  3. TEZEPELUMAB [Suspect]
     Active Substance: TEZEPELUMAB
  4. TEZEPELUMAB [Suspect]
     Active Substance: TEZEPELUMAB
     Route: 058
  5. TEZEPELUMAB [Suspect]
     Active Substance: TEZEPELUMAB
  6. TEZEPELUMAB [Suspect]
     Active Substance: TEZEPELUMAB
     Route: 058
  7. TEZEPELUMAB [Suspect]
     Active Substance: TEZEPELUMAB
  8. TEZEPELUMAB [Suspect]
     Active Substance: TEZEPELUMAB
     Route: 058
  9. ASMANEX [Concomitant]
     Active Substance: MOMETASONE FUROATE
     Route: 065
  10. ASMANEX [Concomitant]
     Active Substance: MOMETASONE FUROATE
     Route: 065
  11. PREDNISONE [Concomitant]
     Active Substance: PREDNISONE
     Dosage: 15 MILLIGRAM, QD
     Route: 065
  12. PREDNISONE [Concomitant]
     Active Substance: PREDNISONE
     Dosage: 15 MILLIGRAM, QD
     Route: 065
  13. SPIRIVA RESPIMAT [Concomitant]
     Active Substance: TIOTROPIUM BROMIDE
     Dosage: 2.5 MICROGRAM, QD
     Route: 065
  14. SPIRIVA RESPIMAT [Concomitant]
     Active Substance: TIOTROPIUM BROMIDE
     Dosage: 2.5 MICROGRAM, QD
     Route: 065
  15. ALBUTEROL [Concomitant]
     Active Substance: ALBUTEROL
     Route: 065
  16. ALBUTEROL [Concomitant]
     Active Substance: ALBUTEROL
     Route: 065
  17. BUDESONIDE\FORMOTEROL [Concomitant]
     Active Substance: BUDESONIDE\FORMOTEROL
     Dosage: 200 MICROGRAM, BID
     Route: 065
  18. BUDESONIDE\FORMOTEROL [Concomitant]
     Active Substance: BUDESONIDE\FORMOTEROL
     Dosage: 200 MICROGRAM, BID
     Route: 065
  19. MONTELUKAST [Concomitant]
     Active Substance: MONTELUKAST
     Dosage: 10 MILLIGRAM, QD
     Route: 065
  20. MONTELUKAST [Concomitant]
     Active Substance: MONTELUKAST
     Dosage: 10 MILLIGRAM, QD
     Route: 065

REACTIONS (4)
  - Eating disorder [Unknown]
  - Malaise [Unknown]
  - Gait disturbance [Unknown]
  - Asthenia [Unknown]
